FAERS Safety Report 5701593-4 (Version None)
Quarter: 2008Q2

REPORT INFORMATION
  Report Type: 
  Country: None (occurrence: None)
  Receive Date: 20080411
  Receipt Date: 20080327
  Transmission Date: 20081010
  Serious: Yes (Life-Threatening, Hospitalization)
  Sender: FDA-Public Use
  Company Number: JP-SANOFI-SYNTHELABO-A01200802091

PATIENT
  Sex: Male
  Weight: 54 kg

DRUGS (18)
  1. PERDIPINE [Concomitant]
     Indication: HYPERTENSION
     Dosage: UNK
     Route: 041
     Dates: start: 20080215, end: 20080216
  2. DEXALTIN [Concomitant]
     Indication: STOMATITIS
     Dosage: UNK
     Dates: start: 20071228, end: 20080214
  3. LOPEMIN [Concomitant]
     Indication: DIARRHOEA
     Dosage: UNK
     Route: 048
     Dates: start: 20071228, end: 20080214
  4. OMEPRAL [Concomitant]
     Indication: ABDOMINAL PAIN UPPER
     Dosage: 20 MG
     Route: 048
     Dates: start: 20071219, end: 20080214
  5. SM [Concomitant]
     Indication: NAUSEA
     Dosage: 1 DF
     Route: 048
     Dates: start: 20071213, end: 20080214
  6. MAGLAX [Concomitant]
     Indication: CONSTIPATION
     Dosage: UNK
     Route: 048
     Dates: start: 20071213, end: 20071219
  7. GLYSENNID [Concomitant]
     Indication: CONSTIPATION
     Dosage: UNK
     Route: 048
     Dates: start: 20071213, end: 20071219
  8. LOXONIN [Concomitant]
     Indication: HEADACHE
     Dosage: UNK
     Route: 048
     Dates: start: 20071211, end: 20071212
  9. MUCOSTA [Concomitant]
     Indication: PROPHYLAXIS
     Dosage: UNK
     Route: 048
     Dates: start: 20071211, end: 20071212
  10. ADALAT [Concomitant]
     Indication: HYPERTENSION
     Dosage: 40 MG
     Route: 048
     Dates: start: 20071207, end: 20080214
  11. NORVASC [Concomitant]
     Indication: HYPERTENSION
     Dosage: 2.5 MG
     Route: 048
     Dates: start: 20071204, end: 20071207
  12. MYSLEE [Concomitant]
     Indication: INSOMNIA
     Dosage: UNK
     Route: 048
     Dates: start: 20071129, end: 20071219
  13. KYTRIL [Concomitant]
     Indication: PREMEDICATION
     Dosage: 3 MG
     Route: 041
     Dates: start: 20071206, end: 20080201
  14. DECADRON [Concomitant]
     Indication: PREMEDICATION
     Dosage: 8 MG
     Route: 041
     Dates: start: 20071206, end: 20080201
  15. AZD 2171 [Suspect]
     Indication: RECTAL CANCER
     Dosage: 30 MG
     Route: 048
     Dates: start: 20071206, end: 20080214
  16. FLUOROURACIL [Suspect]
     Indication: RECTAL CANCER
     Dosage: 658 MG/BODY=400 MG/M2 IN BOLUS THEN 3946 MG/BODY=2400 MG/M2 AS INFUSION
     Route: 041
     Dates: start: 20080201, end: 20080201
  17. ISOVORIN [Suspect]
     Indication: RECTAL CANCER
     Dosage: 329 MG/BODY=200 MG/M2
     Route: 041
     Dates: start: 20080201, end: 20080201
  18. ELPLAT [Suspect]
     Indication: RECTAL CANCER
     Dosage: 140 MG/BODY=85 MG/M2
     Route: 041
     Dates: start: 20080201, end: 20080201

REACTIONS (1)
  - CEREBRAL HAEMORRHAGE [None]
